FAERS Safety Report 16340072 (Version 1)
Quarter: 2019Q2

REPORT INFORMATION
  Report Type: Spontaneous
  Country: FR (occurrence: FR)
  Receive Date: 20190521
  Receipt Date: 20190521
  Transmission Date: 20190711
  Serious: Yes (Other)
  Sender: FDA-Public Use
  Company Number: FR-LUPIN PHARMACEUTICALS INC.-2019-03098

PATIENT
  Age: 17 Year
  Sex: Female

DRUGS (1)
  1. MISOPROSTOL TABLET [Suspect]
     Active Substance: MISOPROSTOL
     Indication: ABORTION INDUCED
     Dosage: 400 MICROGRAM
     Route: 065

REACTIONS (1)
  - Anaphylactic shock [Recovered/Resolved]
